FAERS Safety Report 8092917-4 (Version None)
Quarter: 2012Q1

REPORT INFORMATION
  Report Type: 
  Country: None (occurrence: None)
  Receive Date: 20120128
  Receipt Date: 20111020
  Transmission Date: 20120608
  Serious: Yes (Other)
  Sender: FDA-Public Use
  Company Number: US-ABBOTT-06P-163-0341074-00

PATIENT
  Sex: Female
  Weight: 78.088 kg

DRUGS (13)
  1. EFFEXOR [Concomitant]
     Indication: PRODUCT USED FOR UNKNOWN INDICATION
     Route: 048
  2. METHOTREXATE [Concomitant]
     Indication: RHEUMATOID ARTHRITIS
     Route: 048
  3. OXYBUTYNIN CHLORIDE [Concomitant]
     Indication: BLADDER DISORDER
     Dosage: INCONTINCNENT
  4. HUMIRA [Suspect]
     Route: 058
     Dates: start: 20110101
  5. ZOLPIDEM [Concomitant]
     Indication: INSOMNIA
  6. SALSALATE [Concomitant]
     Indication: PRODUCT USED FOR UNKNOWN INDICATION
     Route: 048
  7. FOLIC ACID [Concomitant]
     Indication: VITAMIN SUPPLEMENTATION
     Route: 048
  8. HYDROCODONE BITARTRATE [Concomitant]
     Indication: PAIN
     Route: 048
  9. ALPRAZOLAM [Concomitant]
     Indication: PANIC ATTACK
  10. CLINDAMYCIN [Suspect]
     Indication: TOOTH INFECTION
     Dates: start: 20110101, end: 20110101
  11. CALCIUM [Concomitant]
     Indication: MINERAL SUPPLEMENTATION
  12. HUMIRA [Suspect]
     Indication: RHEUMATOID ARTHRITIS
     Route: 058
     Dates: end: 20110101
  13. BUPROPION HYDROCHLORIDE [Concomitant]
     Indication: DEPRESSION

REACTIONS (7)
  - BONE DENSITY DECREASED [None]
  - PRURITUS [None]
  - ARTHRALGIA [None]
  - HERPES ZOSTER [None]
  - PAIN OF SKIN [None]
  - TOOTH INFECTION [None]
  - NECK PAIN [None]
